FAERS Safety Report 6734548-1 (Version None)
Quarter: 2010Q2

REPORT INFORMATION
  Report Type: 
  Country: None (occurrence: None)
  Receive Date: 20100520
  Receipt Date: 20100513
  Transmission Date: 20101027
  Serious: Yes (Hospitalization, Disabling)
  Sender: FDA-Public Use
  Company Number: US-ROCHE-703815

PATIENT
  Sex: Female
  Weight: 67.8 kg

DRUGS (4)
  1. CAPECITABINE [Suspect]
     Dosage: 500 MG/M2, BID
     Route: 048
     Dates: start: 20100203, end: 20100505
  2. CAPECITABINE [Suspect]
     Dosage: 500 MG/M2, BID
     Route: 048
     Dates: start: 20100203, end: 20100505
  3. LAPATINIB [Suspect]
     Dosage: 750 MG, QD
     Route: 048
     Dates: start: 20100203, end: 20100505
  4. LAPATINIB [Suspect]
     Dosage: 750 MG, QD
     Route: 048
     Dates: start: 20100203, end: 20100505

REACTIONS (1)
  - FEMUR FRACTURE [None]
